FAERS Safety Report 24071680 (Version 1)
Quarter: 2024Q3

REPORT INFORMATION
  Report Type: Report from Study
  Country: DE (occurrence: DE)
  Receive Date: 20240710
  Receipt Date: 20240710
  Transmission Date: 20241017
  Serious: No
  Sender: ROCHE
  Company Number: DE-ROCHE-3312116

PATIENT
  Age: 5 Year
  Sex: Male
  Weight: 13.8 kg

DRUGS (3)
  1. EVRYSDI [Suspect]
     Active Substance: RISDIPLAM
     Indication: Spinal muscular atrophy
     Dosage: DATE OF TREATMENT: 26/OCT/2022, 29/JUN/2023
     Route: 048
     Dates: start: 20211202, end: 20230629
  2. EVRYSDI [Suspect]
     Active Substance: RISDIPLAM
     Dosage: DATE OF TREATMENT: 26/OCT/2022
     Route: 048
     Dates: start: 20211202, end: 20240403
  3. HYDROCORTISONE [Concomitant]
     Active Substance: HYDROCORTISONE\HYDROCORTISONE ACETATE
     Dates: start: 202306

REACTIONS (3)
  - Gastroenteritis [Recovered/Resolved]
  - Phimosis [Not Recovered/Not Resolved]
  - Respiratory tract infection [Recovered/Resolved]

NARRATIVE: CASE EVENT DATE: 20220804
